FAERS Safety Report 4318393-2 (Version None)
Quarter: 2004Q1

REPORT INFORMATION
  Report Type: 
  Country: None (occurrence: None)
  Receive Date: 20040315
  Receipt Date: 20040302
  Transmission Date: 20041129
  Serious: Yes (Hospitalization)
  Sender: FDA-Public Use
  Company Number: FR-JNJFOC-20040301529

PATIENT
  Age: 43 Year
  Sex: Male

DRUGS (7)
  1. HALDOL [Suspect]
     Indication: PSYCHOTIC DISORDER
     Dosage: IN 1 DAY
     Dates: end: 20040216
  2. TEGRETOL [Suspect]
     Dosage: IN 1 DAY, ORAL
     Route: 048
     Dates: end: 20040216
  3. TERCIAN (CYAMEMAZINE) [Suspect]
     Indication: PSYCHOTIC DISORDER
     Dosage: IN 1 DAY
     Dates: end: 20040216
  4. TRANXENE [Suspect]
     Indication: PSYCHOTIC DISORDER
     Dosage: IN 1 DAY
     Dates: start: 20040213, end: 20040216
  5. PARKINANE (TRIHEXYPHENIDYL HYDROCHLORIDE) [Concomitant]
  6. LEPTICUR (TROPATEPINE HYDROCHLORIDE) [Concomitant]
  7. ALEPSAL (ALEPSAL) [Concomitant]

REACTIONS (4)
  - AGITATION [None]
  - DEPRESSED LEVEL OF CONSCIOUSNESS [None]
  - LUNG DISORDER [None]
  - NEUROLEPTIC MALIGNANT SYNDROME [None]
